FAERS Safety Report 11403225 (Version 1)
Quarter: 2015Q3

REPORT INFORMATION
  Report Type: Spontaneous
  Country: KR (occurrence: KR)
  Receive Date: 20150821
  Receipt Date: 20150821
  Transmission Date: 20151125
  Serious: Yes (Hospitalization)
  Sender: FDA-Public Use
  Company Number: KR-AMGEN-KORCT2015085375

PATIENT
  Age: 43 Year
  Sex: Female

DRUGS (53)
  1. DOCETAXEL. [Concomitant]
     Active Substance: DOCETAXEL
     Dosage: 126 MG, UNK
     Route: 042
     Dates: start: 20150620, end: 20150620
  2. RANITIDINE [Concomitant]
     Active Substance: RANITIDINE\RANITIDINE HYDROCHLORIDE
     Dosage: 150 MG, UNK
     Route: 048
     Dates: start: 20150529, end: 20150529
  3. VITAMEDIN                          /00176001/ [Concomitant]
     Dosage: 50 MG, UNK
     Route: 048
     Dates: start: 20150515, end: 20150516
  4. ACETAMINOPHEN. [Concomitant]
     Active Substance: ACETAMINOPHEN
     Dosage: 1950 MG, UNK
     Route: 048
     Dates: start: 20150517, end: 20150524
  5. G-LASTA [Suspect]
     Active Substance: PEGFILGRASTIM
     Dosage: 6 MG, 1X/3WEEKS
     Route: 058
     Dates: start: 20150621
  6. G-LASTA [Suspect]
     Active Substance: PEGFILGRASTIM
     Dosage: 6 MG, 1X/3WEEKS
     Route: 058
     Dates: start: 20150802
  7. CYCLOPHOSPHAMIDE. [Concomitant]
     Active Substance: CYCLOPHOSPHAMIDE
     Dosage: 840 MG, UNK
     Route: 042
     Dates: start: 20150620, end: 20150620
  8. METOCLOPRAMIDE HCL [Concomitant]
     Active Substance: METOCLOPRAMIDE HYDROCHLORIDE
     Dosage: 10 MG, UNK
     Route: 048
     Dates: start: 20150529, end: 20150529
  9. FILGRASTIM [Concomitant]
     Active Substance: FILGRASTIM
     Dosage: 150 MCG, UNK
     Route: 058
     Dates: start: 20150515, end: 20150516
  10. TOBRAMYCIN. [Concomitant]
     Active Substance: TOBRAMYCIN
     Dosage: 200 MG, UNK
     Route: 042
     Dates: start: 20150515, end: 20150516
  11. G-LASTA [Suspect]
     Active Substance: PEGFILGRASTIM
     Indication: FEBRILE NEUTROPENIA
     Dosage: 6 MG, 1X/3WEEKS
     Route: 058
     Dates: start: 20150510
  12. DOCETAXEL. [Concomitant]
     Active Substance: DOCETAXEL
     Dosage: 126 MG, UNK
     Route: 042
     Dates: start: 20150530, end: 20150530
  13. CYCLOPHOSPHAMIDE. [Concomitant]
     Active Substance: CYCLOPHOSPHAMIDE
     Dosage: 840 MG, UNK
     Route: 042
     Dates: start: 20150711, end: 20150711
  14. CYCLOPHOSPHAMIDE. [Concomitant]
     Active Substance: CYCLOPHOSPHAMIDE
     Dosage: 840 MG, UNK
     Route: 042
     Dates: start: 20150801, end: 20150801
  15. DEXAMETHASONE. [Concomitant]
     Active Substance: DEXAMETHASONE
     Dosage: 10 MG, UNK
     Route: 042
     Dates: start: 20150509, end: 20150509
  16. APREPITANT. [Concomitant]
     Active Substance: APREPITANT
     Dosage: 80 MG, UNK
     Route: 048
     Dates: start: 20150510, end: 20150511
  17. APREPITANT. [Concomitant]
     Active Substance: APREPITANT
     Dosage: 80 MG, UNK
     Route: 048
     Dates: start: 20150530, end: 20150530
  18. G-LASTA [Suspect]
     Active Substance: PEGFILGRASTIM
     Dosage: 6 MG, 1X/3WEEKS
     Route: 058
     Dates: start: 20150712
  19. DOXORUBICIN [Concomitant]
     Active Substance: DOXORUBICIN
     Dosage: 84 MG, UNK
     Route: 042
     Dates: start: 20150620, end: 20150620
  20. DOXORUBICIN [Concomitant]
     Active Substance: DOXORUBICIN
     Dosage: 84 MG, UNK
     Route: 042
     Dates: start: 20150801, end: 20150801
  21. CYCLOPHOSPHAMIDE. [Concomitant]
     Active Substance: CYCLOPHOSPHAMIDE
     Dosage: 840 MG, UNK
     Route: 042
     Dates: start: 20150509, end: 20150509
  22. DEXAMETHASONE. [Concomitant]
     Active Substance: DEXAMETHASONE
     Dosage: 1.5 MG, UNK
     Route: 048
     Dates: start: 20150508, end: 20150508
  23. METOCLOPRAMIDE HCL [Concomitant]
     Active Substance: METOCLOPRAMIDE HYDROCHLORIDE
     Dosage: 30 MG, UNK
     Route: 048
     Dates: start: 20150530, end: 20150531
  24. DEXAMETHASONE. [Concomitant]
     Active Substance: DEXAMETHASONE
     Dosage: 1.5 MG, UNK
     Route: 048
     Dates: start: 20150529, end: 20150529
  25. RANITIDINE [Concomitant]
     Active Substance: RANITIDINE\RANITIDINE HYDROCHLORIDE
     Dosage: 300 MG, UNK
     Route: 048
     Dates: start: 20150530, end: 20150531
  26. FILGRASTIM [Concomitant]
     Active Substance: FILGRASTIM
     Dosage: 150 MCG, UNK
     Route: 058
     Dates: start: 20150605, end: 20150605
  27. DOCETAXEL. [Concomitant]
     Active Substance: DOCETAXEL
     Dosage: 126 MG, UNK
     Route: 042
     Dates: start: 20150801, end: 20150801
  28. PALONOSETRON [Concomitant]
     Active Substance: PALONOSETRON
     Dosage: 0.25 MG, UNK
     Route: 042
     Dates: start: 20150509, end: 20150509
  29. PALONOSETRON [Concomitant]
     Active Substance: PALONOSETRON
     Dosage: 0.25 MG, UNK
     Route: 042
     Dates: start: 20150530, end: 20150530
  30. DEXRAZOXANE. [Concomitant]
     Active Substance: DEXRAZOXANE
     Dosage: 840 MG, UNK
     Route: 042
     Dates: start: 20150509, end: 20150509
  31. CEFOBACTAM [Concomitant]
     Dosage: 2 G, UNK
     Route: 042
     Dates: start: 20150605, end: 20150605
  32. TRESTAN                            /00056201/ [Concomitant]
     Dosage: 2C
     Route: 048
     Dates: start: 20150515, end: 20150516
  33. DOCETAXEL. [Concomitant]
     Active Substance: DOCETAXEL
     Dosage: 126 MG, UNK
     Route: 042
     Dates: start: 20150711, end: 20150711
  34. DOXORUBICIN [Concomitant]
     Active Substance: DOXORUBICIN
     Dosage: 84 MG, UNK
     Route: 042
     Dates: start: 20150509, end: 20150509
  35. DOXORUBICIN [Concomitant]
     Active Substance: DOXORUBICIN
     Dosage: 84 MG, UNK
     Route: 042
     Dates: start: 20150711, end: 20150711
  36. CYCLOPHOSPHAMIDE. [Concomitant]
     Active Substance: CYCLOPHOSPHAMIDE
     Dosage: 840 MG, UNK
     Route: 042
     Dates: start: 20150530, end: 20150530
  37. DEXAMETHASONE. [Concomitant]
     Active Substance: DEXAMETHASONE
     Dosage: 3 MG, UNK
     Route: 048
     Dates: start: 20150510, end: 20150510
  38. APREPITANT. [Concomitant]
     Active Substance: APREPITANT
     Dosage: 125 MG, UNK
     Route: 048
     Dates: start: 20150509, end: 20150509
  39. DIMENHYDRINATE. [Concomitant]
     Active Substance: DIMENHYDRINATE
     Dosage: 150 MG, UNK
     Route: 048
     Dates: start: 20150508, end: 20150510
  40. DIMENHYDRINATE. [Concomitant]
     Active Substance: DIMENHYDRINATE
     Dosage: 50 MG, UNK
     Route: 048
     Dates: start: 20150529, end: 20150529
  41. MEGESTROL ACETATE. [Concomitant]
     Active Substance: MEGESTROL ACETATE
     Dosage: 800 MG, UNK
     Route: 048
     Dates: start: 20150515, end: 20150516
  42. G-LASTA [Suspect]
     Active Substance: PEGFILGRASTIM
     Dosage: 6 MG, 1X/3WEEKS
     Route: 058
     Dates: start: 20150531
  43. DOCETAXEL. [Concomitant]
     Active Substance: DOCETAXEL
     Dosage: 126 MG, UNK
     Route: 042
     Dates: start: 20150509, end: 20150509
  44. DOXORUBICIN [Concomitant]
     Active Substance: DOXORUBICIN
     Dosage: 84 MG, UNK
     Route: 042
     Dates: start: 20150530, end: 20150530
  45. DEXAMETHASONE. [Concomitant]
     Active Substance: DEXAMETHASONE
     Dosage: 3 MG, UNK
     Route: 048
     Dates: start: 20150531, end: 20150531
  46. DEXAMETHASONE. [Concomitant]
     Active Substance: DEXAMETHASONE
     Dosage: 10 MG, UNK
     Route: 042
     Dates: start: 20150529, end: 20150529
  47. APREPITANT. [Concomitant]
     Active Substance: APREPITANT
     Dosage: 125 MG, UNK
     Route: 048
     Dates: start: 20150530, end: 20150530
  48. DIMENHYDRINATE. [Concomitant]
     Active Substance: DIMENHYDRINATE
     Dosage: 150 MG, UNK
     Route: 048
     Dates: start: 20150530, end: 20150531
  49. METOCLOPRAMIDE HCL [Concomitant]
     Active Substance: METOCLOPRAMIDE HYDROCHLORIDE
     Dosage: 30 MG, UNK
     Route: 048
     Dates: start: 20150508, end: 20150510
  50. RANITIDINE [Concomitant]
     Active Substance: RANITIDINE\RANITIDINE HYDROCHLORIDE
     Dosage: 300 MG, UNK
     Route: 048
     Dates: start: 20150508, end: 20150510
  51. DEXRAZOXANE. [Concomitant]
     Active Substance: DEXRAZOXANE
     Dosage: 840 MG, UNK
     Route: 042
     Dates: start: 20150530, end: 20150530
  52. CEFOBACTAM [Concomitant]
     Dosage: 2 G, UNK
     Route: 042
     Dates: start: 20150515, end: 20150516
  53. TOBRAMYCIN. [Concomitant]
     Active Substance: TOBRAMYCIN
     Dosage: 200 MG, UNK
     Route: 042
     Dates: start: 20150605, end: 20150605

REACTIONS (1)
  - Neutropenia [Recovered/Resolved]

NARRATIVE: CASE EVENT DATE: 20150807
